FAERS Safety Report 13940376 (Version 1)
Quarter: 2017Q3

REPORT INFORMATION
  Report Type: Spontaneous
  Country: DE (occurrence: DE)
  Receive Date: 20170906
  Receipt Date: 20170906
  Transmission Date: 20171127
  Serious: Yes (Other)
  Sender: FDA-Public Use
  Company Number: DE-TEVA-801353GER

PATIENT
  Age: 53 Year
  Sex: Male
  Weight: 85 kg

DRUGS (1)
  1. LOPERAMID [Suspect]
     Active Substance: LOPERAMIDE
     Indication: SHORT-BOWEL SYNDROME
     Dosage: 2 DOSAGE FORMS DAILY;
     Route: 048
     Dates: start: 2008

REACTIONS (4)
  - Muscle strain [Unknown]
  - Intestinal atresia [Unknown]
  - Fatigue [Unknown]
  - Musculoskeletal stiffness [Unknown]
